FAERS Safety Report 22040118 (Version 1)
Quarter: 2023Q1

REPORT INFORMATION
  Report Type: Spontaneous
  Country: US (occurrence: None)
  Receive Date: 20230224
  Receipt Date: 20230224
  Transmission Date: 20230417
  Serious: Yes (Hospitalization)
  Sender: FDA-Public Use
  Company Number: None

PATIENT
  Age: 47 Year
  Sex: Female
  Weight: 105.2 kg

DRUGS (1)
  1. SYNJARDY XR [Suspect]
     Active Substance: EMPAGLIFLOZIN\METFORMIN HYDROCHLORIDE
     Indication: Type 2 diabetes mellitus
     Dosage: FREQUENCY : DAILY;?
     Route: 048
     Dates: end: 20230220

REACTIONS (6)
  - Streptococcus test positive [None]
  - Lumbar puncture abnormal [None]
  - Meningitis [None]
  - Metabolic acidosis [None]
  - Euglycaemic diabetic ketoacidosis [None]
  - Drug hypersensitivity [None]

NARRATIVE: CASE EVENT DATE: 20230222
